FAERS Safety Report 7068681-4 (Version None)
Quarter: 2010Q4

REPORT INFORMATION
  Report Type: 
  Country: None (occurrence: None)
  Receive Date: 20101028
  Receipt Date: 20101026
  Transmission Date: 20110411
  Serious: Yes (Hospitalization)
  Sender: FDA-Public Use
  Company Number: DE-SANOFI-AVENTIS-2010SA059082

PATIENT
  Age: 57 Year
  Sex: Male

DRUGS (4)
  1. DOCETAXEL [Suspect]
     Route: 041
     Dates: start: 20100915, end: 20100915
  2. OXALIPLATIN [Suspect]
     Route: 041
     Dates: start: 20100915, end: 20100915
  3. FLUOROURACIL [Suspect]
     Route: 041
     Dates: start: 20100915, end: 20100915
  4. FOLINIC ACID [Suspect]
     Route: 041
     Dates: start: 20100915, end: 20100915

REACTIONS (5)
  - ARTHRALGIA [None]
  - ARTHRITIS [None]
  - GOUT [None]
  - HYPERTHERMIA [None]
  - JOINT SWELLING [None]
